FAERS Safety Report 6594421-9 (Version None)
Quarter: 2010Q1

REPORT INFORMATION
  Report Type: 
  Country: None (occurrence: None)
  Receive Date: 20100222
  Receipt Date: 20100212
  Transmission Date: 20100710
  Serious: Yes (Hospitalization)
  Sender: FDA-Public Use
  Company Number: B0634886A

PATIENT
  Sex: Female
  Weight: 65 kg

DRUGS (7)
  1. LAPATINIB [Suspect]
     Indication: BREAST CANCER
     Route: 048
     Dates: start: 20091019
  2. BUDESONIDA [Concomitant]
     Indication: ASTHMA
     Route: 045
  3. TERBUTALINA [Concomitant]
     Indication: ASTHMA
     Route: 045
  4. LEVOTIROXINA [Concomitant]
     Indication: HYPOTHYROIDISM
     Route: 048
  5. DULOXETINE [Concomitant]
     Indication: DEPRESSION
     Route: 048
     Dates: start: 20070101
  6. BROMAZEPAM [Concomitant]
     Indication: DEPRESSION
     Dates: start: 20070101
  7. TRAZODONE [Concomitant]
     Indication: DEPRESSION
     Route: 048
     Dates: start: 20070101

REACTIONS (2)
  - PYREXIA [None]
  - URINARY TRACT INFECTION [None]
